FAERS Safety Report 13643433 (Version 2)
Quarter: 2020Q3

REPORT INFORMATION
  Report Type: Report from Study
  Country: KR (occurrence: KR)
  Receive Date: 20170612
  Receipt Date: 20170615
  Transmission Date: 20201105
  Serious: Yes (Death, Hospitalization)
  Sender: FDA-Public Use
  Company Number: KR-ASTRAZENECA-2016SE83616

PATIENT
  Age: 15353 Day
  Sex: Male

DRUGS (52)
  1. TREMELIMUMAB. [Suspect]
     Active Substance: TREMELIMUMAB
     Indication: NON-SMALL CELL LUNG CANCER
     Route: 042
     Dates: start: 20160614, end: 20160614
  2. TREMELIMUMAB. [Suspect]
     Active Substance: TREMELIMUMAB
     Indication: NON-SMALL CELL LUNG CANCER
     Route: 042
     Dates: start: 20160712, end: 20160712
  3. LASIX [Concomitant]
     Active Substance: FUROSEMIDE
     Indication: PLEURAL EFFUSION
     Dosage: 10.0MG AS REQUIRED
     Route: 042
     Dates: start: 20160507, end: 20160910
  4. ALMAGEL F [Concomitant]
     Indication: PAIN PROPHYLAXIS
     Dosage: 15.0ML AS REQUIRED
     Route: 048
     Dates: start: 20160512, end: 20160805
  5. TARGIN [Concomitant]
     Active Substance: NALOXONE HYDROCHLORIDE\OXYCODONE HYDROCHLORIDE
     Indication: PAIN
     Dosage: CR10/5, 1 TABLET PRN
     Route: 048
     Dates: start: 20160524, end: 20160715
  6. TARGIN [Concomitant]
     Active Substance: NALOXONE HYDROCHLORIDE\OXYCODONE HYDROCHLORIDE
     Indication: PAIN
     Dosage: CR5/2.5, 1 TABLET BID
     Route: 048
     Dates: start: 20160602, end: 20160612
  7. TARGIN [Concomitant]
     Active Substance: NALOXONE HYDROCHLORIDE\OXYCODONE HYDROCHLORIDE
     Indication: PAIN
     Dosage: CR5/2.5, 1 TABLET BID
     Route: 048
     Dates: start: 20160602, end: 20160612
  8. TARGIN [Concomitant]
     Active Substance: NALOXONE HYDROCHLORIDE\OXYCODONE HYDROCHLORIDE
     Indication: PAIN
     Dosage: CR10/5, 1 TABLET BID
     Route: 048
     Dates: start: 20160710, end: 20160715
  9. RIVOTRIL [Concomitant]
     Active Substance: CLONAZEPAM
     Indication: INSOMNIA
     Route: 048
     Dates: start: 20160628, end: 20160727
  10. CAFSOL [Concomitant]
     Indication: NUTRITIONAL SUPPLEMENTATION
     Route: 042
     Dates: start: 20160709, end: 20160717
  11. NEURONTIN [Concomitant]
     Active Substance: GABAPENTIN
     Indication: MUSCULOSKELETAL CHEST PAIN
     Route: 048
     Dates: start: 20160710, end: 20160721
  12. IXEL [Concomitant]
     Active Substance: MILNACIPRAN HYDROCHLORIDE
     Indication: ANXIETY
     Route: 048
     Dates: start: 20160728, end: 20160728
  13. MEDI4736 [Suspect]
     Active Substance: DURVALUMAB
     Indication: NON-SMALL CELL LUNG CANCER
     Route: 042
     Dates: start: 20160516, end: 20160516
  14. MEDI4736 [Suspect]
     Active Substance: DURVALUMAB
     Indication: NON-SMALL CELL LUNG CANCER
     Route: 042
     Dates: start: 20160712, end: 20160712
  15. TARGIN [Concomitant]
     Active Substance: NALOXONE HYDROCHLORIDE\OXYCODONE HYDROCHLORIDE
     Indication: PAIN
     Dosage: CR10/5, 1 TABLET BID
     Route: 048
     Dates: start: 20160710, end: 20160715
  16. MORPHINE [Concomitant]
     Active Substance: MORPHINE
     Indication: PAIN
     Dosage: 4.0MG AS REQUIRED
     Route: 042
     Dates: start: 20160709, end: 20160802
  17. LEXAPRO [Concomitant]
     Active Substance: ESCITALOPRAM OXALATE
     Indication: ANXIETY
     Route: 048
     Dates: start: 20160710, end: 20160719
  18. XANAX [Concomitant]
     Active Substance: ALPRAZOLAM
     Indication: ANXIETY
     Dosage: 0.25MG AS REQUIRED
     Route: 048
     Dates: start: 20160720, end: 20160827
  19. PETHIDINE [Concomitant]
     Active Substance: MEPERIDINE
     Indication: PLEURAL EFFUSION
     Route: 042
     Dates: start: 20160729, end: 20160729
  20. RIVOTRIL [Concomitant]
     Active Substance: CLONAZEPAM
     Indication: INSOMNIA
     Route: 048
     Dates: start: 20160528, end: 20160530
  21. MORPHINE [Concomitant]
     Active Substance: MORPHINE
     Indication: MUSCULOSKELETAL CHEST PAIN
     Dosage: 4.0MG AS REQUIRED
     Route: 042
     Dates: start: 20160709, end: 20160802
  22. TARGIN [Concomitant]
     Active Substance: NALOXONE HYDROCHLORIDE\OXYCODONE HYDROCHLORIDE
     Indication: PAIN
     Dosage: CR40/20, 1 TABLET BID
     Route: 048
     Dates: start: 20160517, end: 20160525
  23. TARGIN [Concomitant]
     Active Substance: NALOXONE HYDROCHLORIDE\OXYCODONE HYDROCHLORIDE
     Indication: PAIN
     Dosage: CR40/20, 1 TABLET PRN
     Route: 048
     Dates: start: 20160709, end: 20160730
  24. NEURONTIN [Concomitant]
     Active Substance: GABAPENTIN
     Indication: MUSCULOSKELETAL CHEST PAIN
     Route: 048
     Dates: start: 20160721, end: 20160728
  25. LASIX [Concomitant]
     Active Substance: FUROSEMIDE
     Indication: PLEURAL EFFUSION
     Dosage: 20.0MG AS REQUIRED
     Route: 042
     Dates: start: 20160503, end: 20160820
  26. DUROGESIC D?TRANS [Concomitant]
     Active Substance: FENTANYL
     Indication: PAIN
     Dosage: 37 MG EVERY THREE DAYS
     Route: 062
     Dates: start: 20160524, end: 20160725
  27. TARGIN [Concomitant]
     Active Substance: NALOXONE HYDROCHLORIDE\OXYCODONE HYDROCHLORIDE
     Indication: PAIN
     Dosage: CR 20/10, 1 TABLET PRN
     Route: 048
     Dates: start: 20160716, end: 20160730
  28. MORPHINE [Concomitant]
     Active Substance: MORPHINE
     Indication: MUSCULOSKELETAL CHEST PAIN
     Route: 042
     Dates: end: 20160516
  29. LEXAPRO [Concomitant]
     Active Substance: ESCITALOPRAM OXALATE
     Indication: ANXIETY
     Route: 048
     Dates: start: 20160709, end: 20160709
  30. EFFEXOR XR [Concomitant]
     Active Substance: VENLAFAXINE HYDROCHLORIDE
     Indication: ANXIETY
     Dosage: 75.0MG AS REQUIRED
     Route: 048
     Dates: start: 20160720, end: 20160827
  31. ATIVAN [Concomitant]
     Active Substance: LORAZEPAM
     Indication: ANXIETY
     Dosage: 4.0MG AS REQUIRED
     Route: 042
     Dates: start: 20160730, end: 20160802
  32. TREMELIMUMAB. [Suspect]
     Active Substance: TREMELIMUMAB
     Indication: NON-SMALL CELL LUNG CANCER
     Route: 042
     Dates: start: 20160516, end: 20160516
  33. TARGIN [Concomitant]
     Active Substance: NALOXONE HYDROCHLORIDE\OXYCODONE HYDROCHLORIDE
     Indication: PAIN
     Dosage: CR10/5, 1 TABLET PRN
     Route: 048
     Dates: start: 20160524, end: 20160715
  34. TARGIN [Concomitant]
     Active Substance: NALOXONE HYDROCHLORIDE\OXYCODONE HYDROCHLORIDE
     Indication: PAIN
     Dosage: CR40/20, 1 TABLET PRN
     Route: 048
     Dates: start: 20160709, end: 20160730
  35. TARGIN [Concomitant]
     Active Substance: NALOXONE HYDROCHLORIDE\OXYCODONE HYDROCHLORIDE
     Indication: PAIN
     Dosage: CR 20/10, 1 TABLET PRN
     Route: 048
     Dates: start: 20160716, end: 20160730
  36. MORPHINE [Concomitant]
     Active Substance: MORPHINE
     Indication: MUSCULOSKELETAL CHEST PAIN
     Dosage: 15.0MG AS REQUIRED
     Route: 048
     Dates: start: 20160723, end: 20160729
  37. MIRTAZAPINE. [Concomitant]
     Active Substance: MIRTAZAPINE
     Indication: ANXIETY
     Route: 048
     Dates: start: 20160710, end: 20160727
  38. CURAN [Concomitant]
     Active Substance: RANITIDINE HYDROCHLORIDE
     Indication: PAIN PROPHYLAXIS
     Dosage: 150.0MG AS REQUIRED
     Route: 048
     Dates: start: 20160716, end: 20160720
  39. MEGACE?F [Concomitant]
     Indication: PROPHYLAXIS
     Route: 048
     Dates: start: 20160717, end: 20160818
  40. EFFEXOR XR [Concomitant]
     Active Substance: VENLAFAXINE HYDROCHLORIDE
     Indication: ANXIETY
     Dosage: 37.5MG AS REQUIRED
     Route: 048
     Dates: start: 20160726, end: 20160805
  41. REMERON SOLTAB [Concomitant]
     Active Substance: MIRTAZAPINE
     Indication: INSOMNIA
     Dosage: 15.0MG AS REQUIRED
     Route: 048
     Dates: start: 20160728, end: 20160829
  42. ATIVAN [Concomitant]
     Active Substance: LORAZEPAM
     Indication: ANXIETY
     Dosage: 2.0MG AS REQUIRED
     Route: 042
     Dates: start: 20160729, end: 20160729
  43. MEDI4736 [Suspect]
     Active Substance: DURVALUMAB
     Indication: NON-SMALL CELL LUNG CANCER
     Route: 042
     Dates: start: 20160614, end: 20160614
  44. IRCODON [Concomitant]
     Indication: PAIN
     Dosage: 5.0MG AS REQUIRED
     Route: 048
     Dates: start: 20160524, end: 20160722
  45. TARGIN [Concomitant]
     Active Substance: NALOXONE HYDROCHLORIDE\OXYCODONE HYDROCHLORIDE
     Indication: PAIN
     Dosage: CR40/20, 1 TABLET BID
     Route: 048
     Dates: start: 20160517, end: 20160525
  46. TARGIN [Concomitant]
     Active Substance: NALOXONE HYDROCHLORIDE\OXYCODONE HYDROCHLORIDE
     Indication: PAIN
     Dosage: CR5/2.5, 1 TABLET BID
     Route: 048
     Dates: start: 20160517, end: 20160525
  47. TARGIN [Concomitant]
     Active Substance: NALOXONE HYDROCHLORIDE\OXYCODONE HYDROCHLORIDE
     Indication: PAIN
     Dosage: 20/10, 1 TABLET BID
     Route: 048
     Dates: start: 20160530, end: 20160730
  48. MORPHINE [Concomitant]
     Active Substance: MORPHINE
     Indication: PAIN
     Route: 042
     Dates: end: 20160516
  49. LIDOCAINE. [Concomitant]
     Active Substance: LIDOCAINE
     Indication: PLEURAL EFFUSION
     Route: 042
     Dates: start: 20160729, end: 20160729
  50. TARGIN [Concomitant]
     Active Substance: NALOXONE HYDROCHLORIDE\OXYCODONE HYDROCHLORIDE
     Indication: PAIN
     Dosage: CR5/2.5, 1 TABLET BID
     Route: 048
     Dates: start: 20160517, end: 20160525
  51. TARGIN [Concomitant]
     Active Substance: NALOXONE HYDROCHLORIDE\OXYCODONE HYDROCHLORIDE
     Indication: PAIN
     Dosage: 20/10, 1 TABLET BID
     Route: 048
     Dates: start: 20160530, end: 20160730
  52. MORPHINE [Concomitant]
     Active Substance: MORPHINE
     Indication: PAIN
     Dosage: 15.0MG AS REQUIRED
     Route: 048
     Dates: start: 20160723, end: 20160729

REACTIONS (2)
  - Pneumonia [Not Recovered/Not Resolved]
  - Interstitial lung disease [Not Recovered/Not Resolved]

NARRATIVE: CASE EVENT DATE: 20160801
